FAERS Safety Report 6456152-5 (Version None)
Quarter: 2009Q4

REPORT INFORMATION
  Report Type: 
  Country: None (occurrence: None)
  Receive Date: 20091125
  Receipt Date: 20091118
  Transmission Date: 20100525
  Serious: Yes (Hospitalization)
  Sender: FDA-Public Use
  Company Number: NO-WYE-G04924109

PATIENT
  Sex: Male

DRUGS (8)
  1. VENLAFAXINE HYDROCHLORIDE [Suspect]
     Indication: DEPRESSION
     Dates: start: 20091020, end: 20091022
  2. REMERON [Interacting]
     Indication: DEPRESSION
  3. TRUXAL [Concomitant]
  4. SOBRIL [Concomitant]
  5. RELPAX [Concomitant]
     Indication: MIGRAINE
     Dosage: 40 MG WHEN NEEDED
  6. AKINETON [Concomitant]
  7. NOZINAN [Concomitant]
  8. OLANZAPINE [Concomitant]

REACTIONS (2)
  - DRUG INTERACTION [None]
  - SEROTONIN SYNDROME [None]
